FAERS Safety Report 16232546 (Version 3)
Quarter: 2019Q3

REPORT INFORMATION
  Report Type: Spontaneous
  Country: US (occurrence: US)
  Receive Date: 20190424
  Receipt Date: 20190705
  Transmission Date: 20191004
  Serious: Yes (Other)
  Sender: FDA-Public Use
  Company Number: US-BAYER-2019-083275

PATIENT
  Age: 25 Year
  Sex: Female
  Weight: 45.81 kg

DRUGS (4)
  1. MIRENA [Suspect]
     Active Substance: LEVONORGESTREL
     Indication: CONTRACEPTION
     Dosage: 20 MCG/24HR, CONT
     Route: 015
     Dates: end: 20190130
  2. MIRENA [Suspect]
     Active Substance: LEVONORGESTREL
     Indication: MENORRHAGIA
  3. KYLEENA [Suspect]
     Active Substance: LEVONORGESTREL
     Indication: CONTRACEPTION
     Dosage: 17.5 MCG/24HR, CONT
     Route: 015
     Dates: start: 20190130, end: 20190130
  4. MIRENA [Suspect]
     Active Substance: LEVONORGESTREL

REACTIONS (3)
  - Uterine cervix stenosis [None]
  - Embedded device [None]
  - Complication of device insertion [None]

NARRATIVE: CASE EVENT DATE: 20190130
